FAERS Safety Report 7786878-2 (Version None)
Quarter: 2011Q3

REPORT INFORMATION
  Report Type: 
  Country: None (occurrence: None)
  Receive Date: 20110929
  Receipt Date: 20110919
  Transmission Date: 20111222
  Serious: Yes (Hospitalization)
  Sender: FDA-Public Use
  Company Number: FR-EISAI INC-E3810-04885-SPO-FR

PATIENT
  Sex: Female

DRUGS (7)
  1. ACETAMINOPHEN [Suspect]
     Route: 048
     Dates: start: 20110525, end: 20110605
  2. HYDROXYZINE HYDROCHLORIDE [Suspect]
     Dosage: UNKNOWN
     Route: 048
     Dates: start: 20110521, end: 20110606
  3. METEOSPASMYL [Suspect]
     Dosage: UNKNOWN
     Route: 048
     Dates: start: 20110521, end: 20110606
  4. RABEPRAZOLE SODIUM [Suspect]
     Route: 048
     Dates: start: 20110521, end: 20110606
  5. MARSILID PHOSPHATE TAB [Suspect]
     Route: 048
     Dates: start: 20110531, end: 20110606
  6. MARSILID PHOSPHATE TAB [Suspect]
     Route: 048
     Dates: start: 20110101, end: 20110531
  7. LEVONORGESTREL AND ETHINYL ESTRADIOL [Concomitant]
     Indication: CONTRACEPTION
     Dosage: UNKNOWN
     Route: 048
     Dates: end: 20110606

REACTIONS (2)
  - LIVER TRANSPLANT [None]
  - HEPATITIS FULMINANT [None]
